FAERS Safety Report 7224912-9 (Version None)
Quarter: 2011Q1

REPORT INFORMATION
  Report Type: 
  Country: None (occurrence: None)
  Receive Date: 20110113
  Receipt Date: 20110105
  Transmission Date: 20110831
  Serious: Yes (Hospitalization)
  Sender: FDA-Public Use
  Company Number: IT-MPIJNJ-2011-00035

PATIENT

DRUGS (3)
  1. ALKERAN [Concomitant]
     Dosage: 9 MG, UNK
     Route: 048
     Dates: start: 20100923
  2. VELCADE [Suspect]
     Indication: MULTIPLE MYELOMA
     Dosage: 1.3 MG, UNK
     Route: 042
     Dates: start: 20100923, end: 20101118
  3. PREDNISONE [Concomitant]
     Dosage: 100 MG, UNK
     Route: 048
     Dates: start: 20100923

REACTIONS (3)
  - DIVERTICULITIS [None]
  - SEPSIS [None]
  - CARDIAC FAILURE [None]
